FAERS Safety Report 10583705 (Version 4)
Quarter: 2016Q2

REPORT INFORMATION
  Report Type: Spontaneous
  Country: US (occurrence: US)
  Receive Date: 20141114
  Receipt Date: 20160530
  Transmission Date: 20160815
  Serious: Yes (Hospitalization, Other)
  Sender: FDA-Public Use
  Company Number: US-JNJFOC-20141106463

PATIENT
  Age: 79 Year
  Sex: Female
  Weight: 90.72 kg

DRUGS (26)
  1. XARELTO [Suspect]
     Active Substance: RIVAROXABAN
     Indication: CEREBROVASCULAR ACCIDENT PROPHYLAXIS
     Route: 048
  2. DUONEB [Concomitant]
     Active Substance: ALBUTEROL SULFATE\IPRATROPIUM BROMIDE
     Dosage: 0.5 TO 2.5 (3) MG/3ML, ONE INHALATION
     Route: 055
  3. CELEXA [Concomitant]
     Active Substance: CITALOPRAM HYDROBROMIDE
     Indication: DEPRESSION
     Route: 065
  4. FERROUS SULFATE. [Concomitant]
     Active Substance: FERROUS SULFATE
     Route: 048
  5. LEVOTHYROXINE. [Concomitant]
     Active Substance: LEVOTHYROXINE
     Indication: HYPOTHYROIDISM
     Route: 065
  6. REQUIP [Concomitant]
     Active Substance: ROPINIROLE HYDROCHLORIDE
     Indication: RESTLESS LEGS SYNDROME
     Route: 065
  7. LAC-HYDRIN LOTION [Concomitant]
     Indication: PRURITUS
     Dosage: ONE LOTION APPLY ALL SKIN AFTER BATHING/WATER EXPOSURE DAILY TO TWICE DAILY
     Route: 065
     Dates: start: 20130906
  8. ATENOLOL. [Concomitant]
     Active Substance: ATENOLOL
     Indication: ATRIAL FIBRILLATION
     Route: 065
  9. THERMOTABS [Concomitant]
     Dosage: TWO TABLETS, TAKING 9 PILL TOTAL
     Route: 065
  10. SUCRALFATE. [Concomitant]
     Active Substance: SUCRALFATE
     Dosage: 1 G/ 10 ML SUSPENSION
     Route: 048
  11. NEXIUM [Concomitant]
     Active Substance: ESOMEPRAZOLE MAGNESIUM
     Indication: GASTROOESOPHAGEAL REFLUX DISEASE
     Route: 065
     Dates: start: 20140117
  12. VITAMIN C [Concomitant]
     Active Substance: ASCORBIC ACID
     Route: 048
  13. SENNA [Concomitant]
     Active Substance: SENNA LEAF\SENNOSIDES\SENNOSIDES A AND B
     Indication: CONSTIPATION
     Dosage: 8.6 TO 50 MG TABLET
     Route: 048
  14. DOCUSATE [Concomitant]
     Active Substance: DOCUSATE
     Indication: CONSTIPATION
     Route: 065
  15. VALSARTAN. [Concomitant]
     Active Substance: VALSARTAN
     Route: 065
  16. KETOCONAZOLE. [Concomitant]
     Active Substance: KETOCONAZOLE
     Indication: SKIN CANDIDA
     Dosage: APPLY ONCE OR TWICE DAILY ON AFFECTED AREA
     Route: 065
     Dates: start: 20121019
  17. XARELTO [Suspect]
     Active Substance: RIVAROXABAN
     Indication: ATRIAL FIBRILLATION
     Route: 048
  18. XARELTO [Suspect]
     Active Substance: RIVAROXABAN
     Indication: ATRIAL FIBRILLATION
     Route: 048
     Dates: start: 20141122
  19. AMIODARONE HYDROCHLORIDE. [Concomitant]
     Active Substance: AMIODARONE HYDROCHLORIDE
     Indication: ATRIAL FIBRILLATION
     Route: 065
  20. XARELTO [Suspect]
     Active Substance: RIVAROXABAN
     Indication: CEREBROVASCULAR ACCIDENT PROPHYLAXIS
     Route: 048
  21. XARELTO [Suspect]
     Active Substance: RIVAROXABAN
     Indication: ATRIAL FIBRILLATION
     Route: 048
  22. CAPSAICIN. [Concomitant]
     Active Substance: CAPSAICIN
     Indication: NEURALGIA
     Dosage: APPLY TO DISTAL FINGERS 2 TO 3 TIMES PER DAY AS NEEDED
     Route: 065
  23. XARELTO [Suspect]
     Active Substance: RIVAROXABAN
     Indication: CEREBROVASCULAR ACCIDENT PROPHYLAXIS
     Route: 048
     Dates: start: 20141122
  24. BUMETANIDE. [Concomitant]
     Active Substance: BUMETANIDE
     Indication: LYMPHOEDEMA
     Route: 065
     Dates: start: 20140117
  25. MS CONTIN [Concomitant]
     Active Substance: MORPHINE SULFATE
     Route: 065
     Dates: start: 20141120
  26. OXYCODONE HYDROCHLORIDE. [Concomitant]
     Active Substance: OXYCODONE HYDROCHLORIDE
     Indication: PAIN IN EXTREMITY
     Route: 065
     Dates: start: 20141029

REACTIONS (11)
  - Deep vein thrombosis [Recovered/Resolved]
  - Urinary tract infection [Unknown]
  - Pain in extremity [Unknown]
  - Urinary retention [Unknown]
  - Waist circumference increased [Unknown]
  - Oedema peripheral [Unknown]
  - Ecchymosis [Unknown]
  - Dyspnoea [Unknown]
  - Soft tissue haemorrhage [Unknown]
  - Treatment failure [Unknown]
  - Contusion [Unknown]

NARRATIVE: CASE EVENT DATE: 20141016
